FAERS Safety Report 6327521-9 (Version None)
Quarter: 2009Q3

REPORT INFORMATION
  Report Type: 
  Country: None (occurrence: None)
  Receive Date: 20090825
  Receipt Date: 20090813
  Transmission Date: 20100115
  Serious: Yes (Hospitalization)
  Sender: FDA-Public Use
  Company Number: PHHY2009IE34492

PATIENT
  Sex: Male

DRUGS (1)
  1. CLOZARIL [Suspect]
     Indication: SCHIZOPHRENIA
     Dosage: DOSE 100MG MANE, 400MG NOCTE
     Route: 048
     Dates: start: 20060119

REACTIONS (5)
  - BODY TEMPERATURE FLUCTUATION [None]
  - DRUG DOSE OMISSION [None]
  - NEUTROPHIL COUNT INCREASED [None]
  - TUBERCULOSIS [None]
  - WHITE BLOOD CELL COUNT INCREASED [None]
